FAERS Safety Report 10375762 (Version 1)
Quarter: 2014Q1

REPORT INFORMATION
  Report Type: Spontaneous
  Country: US (occurrence: None)
  Receive Date: 20140306
  Receipt Date: 20140306
  Transmission Date: 20141002
  Serious: Yes (Hospitalization, Other)
  Sender: FDA-Public Use
  Company Number: 163-21880-13121878

PATIENT
  Age: 56 Year
  Sex: Male
  Weight: 90.7 kg

DRUGS (15)
  1. REVLIMID (LENALIDOMIDE) [Suspect]
     Indication: PLASMA CELL MYELOMA
     Dosage: 10MG, 28 IN 28D, PO
     Route: 048
     Dates: start: 201302
  2. LYRICA (PREGABALIN) [Concomitant]
  3. CEPHALEXIN (CEFALEXIN) [Concomitant]
  4. AZITHROMYCIN (AZITHROMYCIN) [Concomitant]
  5. TAMSULOSIN HCL (TAMSULOSIN HYDROCHLORIDE) [Concomitant]
  6. VENLAFAXINE HCL (VENLAFAXINE HYDROCHLORIDE) [Concomitant]
  7. RANITIDINE (RANITIDINE) [Concomitant]
  8. SEROQUEL (QUETIAPINE FUMARATE) [Concomitant]
  9. CYCLOBENZAPRINE (CYCLOBENZAPRINE) [Concomitant]
  10. CYCLOBENZAPRINE (CYCLOBENZAPRINE) [Concomitant]
  11. WARFARIN SODIUM (WARFARIN SODIUM) [Concomitant]
  12. HYDROCODONE/ACETAMINOPHEN (REMEDEINE) [Concomitant]
  13. LIDODERM (LIDOCAINE) (POULTICE OR PATCH) [Concomitant]
  14. OXYCONTIN (OXYCODONE HYDROCHLORIDE) [Concomitant]
  15. OXYCODONE HCL (OXYCODONE HYDROCHLORIDE) [Concomitant]

REACTIONS (2)
  - Road traffic accident [None]
  - Femur fracture [None]
